FAERS Safety Report 14868441 (Version 1)
Quarter: 2018Q2

REPORT INFORMATION
  Report Type: Report from Study
  Country: None (occurrence: CH)
  Receive Date: 20180509
  Receipt Date: 20180509
  Transmission Date: 20180711
  Serious: Yes (Hospitalization)
  Sender: FDA-Public Use
  Company Number: CH-ABBVIE-18K-151-2338196-00

PATIENT
  Age: 82 Year
  Sex: Male

DRUGS (2)
  1. DUODOPA [Suspect]
     Active Substance: CARBIDOPA\LEVODOPA
     Indication: PARKINSON^S DISEASE
     Dosage: MORNING DOSE 7.0ML?CONTINUOUS RATE DAY 4.5L/H ?CONTINUOUS RATE NIGHT 3.5ML/H ED 2DOSE
     Route: 050
     Dates: start: 20160509
  2. AUGMENTIN [Concomitant]
     Active Substance: AMOXICILLIN\CLAVULANATE POTASSIUM
     Indication: PNEUMONIA
     Route: 042

REACTIONS (7)
  - Device deployment issue [Unknown]
  - Pneumonia [Unknown]
  - Device dislocation [Recovered/Resolved]
  - Stoma site extravasation [Unknown]
  - Device dislocation [Recovered/Resolved]
  - Akinesia [Unknown]
  - Pyrexia [Unknown]

NARRATIVE: CASE EVENT DATE: 2018
